FAERS Safety Report 7581314-3 (Version None)
Quarter: 2011Q2

REPORT INFORMATION
  Report Type: 
  Country: None (occurrence: None)
  Receive Date: 20110629
  Receipt Date: 20110617
  Transmission Date: 20111010
  Serious: Yes (Other)
  Sender: FDA-Public Use
  Company Number: BR-ROCHE-784491

PATIENT

DRUGS (4)
  1. LEUCOVORIN CALCIUM [Suspect]
     Route: 065
  2. FLUOROURACIL [Suspect]
     Route: 065
  3. IRINOTECAN HYDROCHLORIDE [Suspect]
     Route: 065
  4. AVASTIN [Suspect]
     Route: 065

REACTIONS (1)
  - ANGIOEDEMA [None]
